FAERS Safety Report 17200986 (Version 1)
Quarter: 2019Q4

REPORT INFORMATION
  Report Type: Spontaneous
  Country: FR (occurrence: FR)
  Receive Date: 20191226
  Receipt Date: 20191226
  Transmission Date: 20200122
  Serious: Yes (Hospitalization)
  Sender: FDA-Public Use
  Company Number: FR-ASTRAZENECA-2019SF84609

PATIENT
  Age: 17 Year
  Sex: Female

DRUGS (1)
  1. XEROQUEL LP [Suspect]
     Active Substance: QUETIAPINE FUMARATE
     Indication: POISONING DELIBERATE
     Dosage: 20.0DF UNKNOWN
     Route: 048
     Dates: start: 20191129

REACTIONS (2)
  - Antidepressant drug level [Recovering/Resolving]
  - Poisoning deliberate [Recovering/Resolving]

NARRATIVE: CASE EVENT DATE: 20191129
